FAERS Safety Report 16435152 (Version 1)
Quarter: 2019Q2

REPORT INFORMATION
  Report Type: Spontaneous
  Country: DE (occurrence: DE)
  Receive Date: 20190614
  Receipt Date: 20190614
  Transmission Date: 20190711
  Serious: Yes (Life-Threatening, Other)
  Sender: FDA-Public Use
  Company Number: DE-ASTRAZENECA-2019SE85462

PATIENT
  Age: 74 Year
  Sex: Male

DRUGS (2)
  1. BRILIQUE [Suspect]
     Active Substance: TICAGRELOR
     Indication: ACUTE CORONARY SYNDROME
     Route: 048
  2. FORXIGA [Suspect]
     Active Substance: DAPAGLIFLOZIN
     Route: 048

REACTIONS (13)
  - Renal impairment [Unknown]
  - Myocardial ischaemia [Unknown]
  - Myocardial fibrosis [Unknown]
  - Ventricular tachycardia [Unknown]
  - Epistaxis [Unknown]
  - Sepsis [Unknown]
  - Cardiac tamponade [Unknown]
  - Coronary artery disease [Unknown]
  - Dizziness [Unknown]
  - Hypotension [Unknown]
  - Eye movement disorder [Unknown]
  - Multiple organ dysfunction syndrome [Unknown]
  - Ejection fraction decreased [Unknown]
